FAERS Safety Report 4378101-6 (Version None)
Quarter: 2004Q2

REPORT INFORMATION
  Report Type: 
  Country: None (occurrence: None)
  Receive Date: 20040616
  Receipt Date: 20040603
  Transmission Date: 20050107
  Serious: Yes (Other)
  Sender: FDA-Public Use
  Company Number: PHBS2004FR07394

PATIENT
  Sex: Male

DRUGS (5)
  1. BROMOCRIPTINE MESYLATE [Suspect]
     Indication: PARKINSON'S DISEASE
     Dosage: 75 MG/DAY
  2. BROMOCRIPTINE MESYLATE [Suspect]
     Dosage: 15 MG/DAY
  3. LEVODOPA [Concomitant]
     Indication: PARKINSON'S DISEASE
     Dosage: 2050 MG/DAY
  4. LEVODOPA [Concomitant]
     Dosage: 600 MG/DAY
  5. LEVODOPA [Concomitant]
     Dosage: 200 MG/DAY

REACTIONS (3)
  - DEPRESSION [None]
  - MANIA [None]
  - SEXUAL ACTIVITY INCREASED [None]
